FAERS Safety Report 12836469 (Version 2)
Quarter: 2017Q1

REPORT INFORMATION
  Report Type: Spontaneous
  Country: US (occurrence: US)
  Receive Date: 20161011
  Receipt Date: 20170205
  Transmission Date: 20170428
  Serious: No
  Sender: FDA-Public Use
  Company Number: US-LUNDBECK-DKLU2019879

PATIENT
  Sex: Female

DRUGS (1)
  1. NORTHERA [Suspect]
     Active Substance: DROXIDOPA
     Indication: PRODUCT USED FOR UNKNOWN INDICATION
     Dosage: SCHEDULE C WITH NO TITRATION
     Route: 065
     Dates: start: 20160910, end: 201609

REACTIONS (6)
  - Muscle tightness [Unknown]
  - Eye movement disorder [Unknown]
  - Hypotension [Unknown]
  - Pruritus [Unknown]
  - Rash erythematous [Unknown]
  - Amnesia [Unknown]
